FAERS Safety Report 10062739 (Version 1)
Quarter: 2014Q2

REPORT INFORMATION
  Report Type: Spontaneous
  Country: JP (occurrence: JP)
  Receive Date: 20140407
  Receipt Date: 20140407
  Transmission Date: 20141212
  Serious: Yes (Other)
  Sender: FDA-Public Use
  Company Number: JP-GLAXOSMITHKLINE-B0982927A

PATIENT
  Sex: 0

DRUGS (1)
  1. ARIXTRA [Suspect]
     Indication: PULMONARY EMBOLISM
     Route: 058
     Dates: start: 20140315

REACTIONS (1)
  - Melaena [Unknown]
